FAERS Safety Report 4984479-2 (Version None)
Quarter: 2006Q2

REPORT INFORMATION
  Report Type: 
  Country: None (occurrence: None)
  Receive Date: 20060427
  Receipt Date: 20060413
  Transmission Date: 20061013
  Serious: Yes (Other)
  Sender: FDA-Public Use
  Company Number: PT-GLAXOSMITHKLINE-B0421437A

PATIENT
  Age: 60 Year
  Sex: Female
  Weight: 60 kg

DRUGS (4)
  1. PAXETIL [Suspect]
     Indication: DRUG USE FOR UNKNOWN INDICATION
     Dosage: 20MG PER DAY
     Route: 048
     Dates: start: 20060216
  2. IDEBENONE [Concomitant]
     Indication: DRUG USE FOR UNKNOWN INDICATION
     Dosage: 45MG PER DAY
     Route: 048
     Dates: start: 20060216
  3. TRAZODONE HCL [Concomitant]
     Indication: DRUG USE FOR UNKNOWN INDICATION
     Dosage: 100MG PER DAY
     Route: 048
     Dates: start: 20060216
  4. ETHYL LOFLAZEPATE [Concomitant]
     Indication: DRUG USE FOR UNKNOWN INDICATION
     Dosage: 2MG PER DAY
     Route: 048
     Dates: start: 20060216

REACTIONS (6)
  - ABDOMINAL PAIN [None]
  - DISCOMFORT [None]
  - DRY MOUTH [None]
  - DYSGEUSIA [None]
  - SOMNOLENCE [None]
  - WEIGHT DECREASED [None]
